FAERS Safety Report 25165984 (Version 2)
Quarter: 2025Q2

REPORT INFORMATION
  Report Type: Spontaneous
  Country: US (occurrence: US)
  Receive Date: 20250407
  Receipt Date: 20250417
  Transmission Date: 20250716
  Serious: Yes (Life-Threatening, Hospitalization)
  Sender: TEVA
  Company Number: US-TEVA-VS-3317080

PATIENT
  Age: 51 Year
  Sex: Female

DRUGS (1)
  1. METHOTREXATE [Suspect]
     Active Substance: METHOTREXATE
     Indication: Rheumatoid arthritis
     Route: 065

REACTIONS (5)
  - Pulmonary toxicity [Recovering/Resolving]
  - Sepsis [Recovering/Resolving]
  - Acute respiratory distress syndrome [Recovering/Resolving]
  - Respiratory failure [Recovering/Resolving]
  - Organising pneumonia [Recovering/Resolving]
